FAERS Safety Report 8000416-0 (Version None)
Quarter: 2011Q4

REPORT INFORMATION
  Report Type: 
  Country: None (occurrence: None)
  Receive Date: 20111222
  Receipt Date: 20110120
  Transmission Date: 20120403
  Serious: No
  Sender: FDA-Public Use
  Company Number: US-BRISTOL-MYERS SQUIBB COMPANY-15505688

PATIENT
  Age: 64 Year
  Sex: Male

DRUGS (6)
  1. SIMVASTATIN [Suspect]
     Indication: HYPERCHOLESTEROLAEMIA
     Route: 048
  2. HYDROCHLOROTHIAZIDE [Concomitant]
  3. PRAVACHOL [Suspect]
  4. VASOTEC [Concomitant]
  5. CRESTOR [Suspect]
  6. LIPITOR [Suspect]

REACTIONS (1)
  - MYALGIA [None]
